FAERS Safety Report 9331340 (Version 1)
Quarter: 2013Q2

REPORT INFORMATION
  Report Type: Spontaneous
  Country: US (occurrence: US)
  Receive Date: 20130605
  Receipt Date: 20130605
  Transmission Date: 20140414
  Serious: No
  Sender: FDA-Public Use
  Company Number: US-TARO-2012P1056272

PATIENT
  Age: 5 Year
  Sex: Male
  Weight: 19.96 kg

DRUGS (2)
  1. CETIRIZINE HCL ORAL SOLUTION ALLERGY 1 MG/ML OTC [Suspect]
     Route: 048
     Dates: start: 20120826, end: 20120826
  2. RANITIDINE [Concomitant]
     Dates: start: 20120826, end: 20120826

REACTIONS (4)
  - Psychomotor hyperactivity [Recovered/Resolved]
  - Chest pain [Recovered/Resolved]
  - Palpitations [Recovered/Resolved]
  - Hypersensitivity [Recovered/Resolved]
